FAERS Safety Report 25155796 (Version 4)
Quarter: 2025Q2

REPORT INFORMATION
  Report Type: Spontaneous
  Country: US (occurrence: US)
  Receive Date: 20250403
  Receipt Date: 20250527
  Transmission Date: 20250717
  Serious: No
  Sender: PFIZER
  Company Number: US-PFIZER INC-202500000666

PATIENT
  Age: 13 Year
  Sex: Female

DRUGS (1)
  1. GENOTROPIN [Suspect]
     Active Substance: SOMATROPIN
     Dosage: 0.9 MG, DAILY (7 DAYS/WEEK )

REACTIONS (4)
  - Product communication issue [Unknown]
  - Product dose omission issue [Unknown]
  - Device mechanical issue [Unknown]
  - Device information output issue [Unknown]
